FAERS Safety Report 10793202 (Version 2)
Quarter: 2015Q1

REPORT INFORMATION
  Report Type: Report from Study
  Country: EC (occurrence: EC)
  Receive Date: 20150213
  Receipt Date: 20150310
  Transmission Date: 20150721
  Serious: Yes (Death, Other)
  Sender: FDA-Public Use
  Company Number: EC-ABBVIE-15K-047-1343956-00

PATIENT
  Age: 66 Year
  Sex: Female

DRUGS (1)
  1. HUMIRA [Suspect]
     Active Substance: ADALIMUMAB
     Indication: PSORIASIS
     Route: 065
     Dates: start: 20120423, end: 20130223

REACTIONS (4)
  - Osteoporosis [Fatal]
  - Hepatic cirrhosis [Fatal]
  - Psoriasis [Fatal]
  - Echinococciasis [Fatal]
